FAERS Safety Report 18004600 (Version 1)
Quarter: 2020Q3

REPORT INFORMATION
  Report Type: Report from Study
  Country: RU (occurrence: RU)
  Receive Date: 20200710
  Receipt Date: 20200710
  Transmission Date: 20201103
  Serious: Yes (Other)
  Sender: FDA-Public Use
  Company Number: RU-ASTRAZENECA-2020SE85355

PATIENT
  Age: 57 Year
  Sex: Female
  Weight: 85 kg

DRUGS (5)
  1. PRESTANCE [Concomitant]
     Active Substance: AMLODIPINE BESYLATE\PERINDOPRIL ARGININE
     Route: 065
  2. CONCOR [Concomitant]
     Active Substance: BISOPROLOL FUMARATE
     Route: 065
  3. PERINDOPRIL [Concomitant]
     Active Substance: PERINDOPRIL
  4. TORASEMIDE [Concomitant]
     Active Substance: TORSEMIDE
     Route: 065
  5. XIGDUO XR [Suspect]
     Active Substance: DAPAGLIFLOZIN PROPANEDIOL\METFORMIN HYDROCHLORIDE
     Indication: TYPE 2 DIABETES MELLITUS
     Dosage: 5 MG\1000 MG ONCE A DAY (AT LUNCH),
     Route: 048

REACTIONS (1)
  - Blood pressure systolic increased [Not Recovered/Not Resolved]
